FAERS Safety Report 4478260-0 (Version None)
Quarter: 2004Q4

REPORT INFORMATION
  Report Type: 
  Country: None (occurrence: None)
  Receive Date: 20041018
  Receipt Date: 20041018
  Transmission Date: 20050328
  Serious: Yes (Hospitalization, Other)
  Sender: FDA-Public Use
  Company Number: None

PATIENT
  Age: 19 Year
  Sex: Female
  Weight: 61.6892 kg

DRUGS (1)
  1. BOTULISM TOXIN [Suspect]
     Indication: ANAL FISSURE
     Dosage: 20 IU INJECTED INTO ANAL FISSURE

REACTIONS (2)
  - ANAPHYLACTIC SHOCK [None]
  - MULTIPLE ALLERGIES [None]
